FAERS Safety Report 16169907 (Version 1)
Quarter: 2019Q2

REPORT INFORMATION
  Report Type: Spontaneous
  Country: US (occurrence: US)
  Receive Date: 20190408
  Receipt Date: 20190408
  Transmission Date: 20190711
  Serious: Yes (Hospitalization)
  Sender: FDA-Public Use
  Company Number: US-MYLANLABS-2019M1031980

PATIENT
  Age: 52 Year
  Sex: Female

DRUGS (6)
  1. HYDROXYZINE [Concomitant]
     Active Substance: HYDROXYZINE HYDROCHLORIDE
     Indication: ANXIETY
     Dosage: 25MG AS NEEDED
     Route: 065
  2. MULTIVITAMIN                       /00097801/ [Concomitant]
     Active Substance: VITAMINS
     Indication: ANXIETY
     Route: 065
  3. DESVENLAFAXINE. [Concomitant]
     Active Substance: DESVENLAFAXINE
     Indication: GENERALISED ANXIETY DISORDER
     Route: 065
  4. TRAMADOL. [Suspect]
     Active Substance: TRAMADOL
     Indication: COCCYDYNIA
     Route: 065
  5. THIAMINE. [Concomitant]
     Active Substance: THIAMINE
     Indication: ANXIETY
     Route: 065
  6. FOLIC ACID. [Concomitant]
     Active Substance: FOLIC ACID
     Indication: ANXIETY
     Route: 065

REACTIONS (1)
  - Hyponatraemia [Recovering/Resolving]
